FAERS Safety Report 8273367-4 (Version None)
Quarter: 2012Q2

REPORT INFORMATION
  Report Type: 
  Country: None (occurrence: None)
  Receive Date: 20120411
  Receipt Date: 20120404
  Transmission Date: 20120825
  Serious: Yes (Disabling, Other)
  Sender: FDA-Public Use
  Company Number: PHHY2012FR029615

PATIENT
  Sex: Female

DRUGS (14)
  1. TAMOXIFEN CITRATE [Suspect]
     Indication: BREAST CANCER
     Dates: start: 20070601, end: 20080401
  2. FLUOROURACIL [Suspect]
     Indication: BREAST CANCER
     Route: 042
  3. TAXOTERE [Suspect]
     Indication: BREAST CANCER
     Dates: start: 20061101, end: 20070101
  4. AVASTIN [Suspect]
     Indication: BREAST CANCER
     Route: 042
     Dates: start: 20100326, end: 20110126
  5. FEMARA [Suspect]
     Indication: BREAST CANCER
     Dosage: UNK UKN, UNK
     Dates: start: 20080401, end: 20100401
  6. CYCLOPHOSPHAMIDE [Suspect]
     Route: 042
     Dates: start: 20060915, end: 20061027
  7. MINOXIDIL [Concomitant]
  8. EPIRUBICIN HYDROCHLORIDE [Suspect]
     Indication: BREAST CANCER
     Route: 042
  9. XELODA [Suspect]
     Indication: BREAST CANCER
     Route: 048
     Dates: start: 20101101, end: 20110101
  10. DOXORUBICIN HYDROCHLORIDE [Suspect]
     Indication: BREAST CANCER
     Route: 042
     Dates: start: 20110311, end: 20110701
  11. CYCLOPHOSPHAMIDE [Suspect]
     Dates: start: 20110701
  12. DOXORUBICIN HCL [Concomitant]
     Dates: start: 20110701
  13. TAXOTERE [Suspect]
     Dates: start: 20100326, end: 20100716
  14. AROMASIN [Suspect]
     Indication: BREAST CANCER
     Route: 048
     Dates: start: 20100801, end: 20101101

REACTIONS (4)
  - BREAST CANCER RECURRENT [None]
  - ONYCHOLYSIS [None]
  - LYMPHANGITIS [None]
  - ALOPECIA [None]
